FAERS Safety Report 17740136 (Version 1)
Quarter: 2020Q2

REPORT INFORMATION
  Report Type: Spontaneous
  Country: US (occurrence: US)
  Receive Date: 20200503
  Receipt Date: 20200503
  Transmission Date: 20200714
  Serious: Yes (Life-Threatening, Hospitalization, Disabling)
  Sender: FDA-Public Use
  Company Number: None

PATIENT
  Age: 55 Year
  Sex: Male
  Weight: 112.5 kg

DRUGS (5)
  1. LISINOPRIL. [Concomitant]
     Active Substance: LISINOPRIL
  2. GABAPENTIN. [Concomitant]
     Active Substance: GABAPENTIN
  3. MULTIVITAMIN [Concomitant]
     Active Substance: VITAMINS
  4. STEGLATRO [Suspect]
     Active Substance: ERTUGLIFLOZIN PIDOLATE
     Indication: TYPE 2 DIABETES MELLITUS
     Dosage: ?       ?
     Route: 048
     Dates: start: 20190530, end: 20200419
  5. METFORMIN [Concomitant]
     Active Substance: METFORMIN HYDROCHLORIDE

REACTIONS (4)
  - Limb injury [None]
  - Infection [None]
  - Foot amputation [None]
  - Impaired healing [None]

NARRATIVE: CASE EVENT DATE: 20200419
